FAERS Safety Report 9294688 (Version 1)
Quarter: 2013Q2

REPORT INFORMATION
  Report Type: Spontaneous
  Country: US (occurrence: US)
  Receive Date: 20130517
  Receipt Date: 20130517
  Transmission Date: 20140414
  Serious: No
  Sender: FDA-Public Use
  Company Number: US-PFIZER INC-2013149915

PATIENT
  Age: 55 Year
  Sex: Female

DRUGS (15)
  1. EFFEXOR [Suspect]
     Dosage: UNK
  2. EFFEXOR XR [Suspect]
     Dosage: UNK
  3. NEURONTIN [Suspect]
     Dosage: UNK
  4. DOXEPIN HCL [Suspect]
     Dosage: UNK
  5. LITHIUM CARBONATE [Suspect]
     Dosage: UNK
  6. ABILIFY [Suspect]
     Dosage: UNK
  7. BUSPAR [Suspect]
     Dosage: UNK
  8. DEPAKOTE [Suspect]
     Dosage: UNK
  9. LAMICTAL [Suspect]
     Dosage: UNK
  10. PAXIL [Suspect]
     Dosage: UNK
  11. PROZAC [Suspect]
     Dosage: UNK
  12. SAPHRIS [Suspect]
     Dosage: UNK
  13. SEROQUEL [Suspect]
     Dosage: UNK
  14. TEGRETAL [Suspect]
     Dosage: UNK
  15. WELLBUTRIN [Suspect]
     Dosage: UNK

REACTIONS (1)
  - Drug hypersensitivity [Unknown]
